FAERS Safety Report 6141889-8 (Version None)
Quarter: 2009Q2

REPORT INFORMATION
  Report Type: 
  Country: None (occurrence: None)
  Receive Date: 20090402
  Receipt Date: 20090324
  Transmission Date: 20091009
  Serious: Yes (Other)
  Sender: FDA-Public Use
  Company Number: PHHY2009DE11542

PATIENT
  Age: 96 Year
  Sex: Female

DRUGS (13)
  1. RASILEZ [Suspect]
     Indication: HYPERTENSION
     Dosage: 150 MG
     Route: 048
     Dates: start: 20080101
  2. RASILEZ [Suspect]
     Indication: TACHYCARDIA
     Dosage: 300 MG DAILY
  3. RASILEZ [Suspect]
     Dosage: 150 MG
  4. RASILEZ [Suspect]
     Dosage: 0.25-0-0.25 DF/DAY
  5. DIOVAN [Suspect]
     Indication: HYPERTENSION
     Dosage: 2X80 MG DAILY
     Route: 048
     Dates: start: 20090121, end: 20090126
  6. LORZAAR [Suspect]
     Indication: HYPERTENSION
  7. BAYOTENSIN [Concomitant]
     Dosage: UNK
     Dates: start: 20090322
  8. DIGITOXIN TAB [Concomitant]
     Indication: SUPRAVENTRICULAR TACHYCARDIA
     Dosage: 1-0-0-0 DF/DAY
     Route: 048
     Dates: start: 20080101
  9. NITROGLYCERIN [Concomitant]
     Indication: CARDIAC FAILURE
  10. PERINDOPRIL ERBUMINE [Concomitant]
     Dosage: 0-0-0.5-0
     Dates: start: 20090201
  11. ASPIRIN [Concomitant]
     Dosage: 1-0-0-0
  12. TEBONIN [Concomitant]
  13. HYDROCHLOROTHIAZIDE [Concomitant]
     Dosage: 6.25 MG/DAY
     Dates: start: 20090210, end: 20090214

REACTIONS (9)
  - APHASIA [None]
  - ATAXIA [None]
  - BLOOD PRESSURE INADEQUATELY CONTROLLED [None]
  - COUGH [None]
  - NERVOUS SYSTEM DISORDER [None]
  - PARADOXICAL PRESSOR RESPONSE [None]
  - RASH [None]
  - SNEEZING [None]
  - VOMITING [None]
